FAERS Safety Report 11880213 (Version 2)
Quarter: 2016Q1

REPORT INFORMATION
  Report Type: Spontaneous
  Country: US (occurrence: US)
  Receive Date: 20151230
  Receipt Date: 20160310
  Transmission Date: 20160526
  Serious: Yes (Other)
  Sender: FDA-Public Use
  Company Number: US-BAYER-2015-497616

PATIENT
  Age: 42 Year
  Sex: Female
  Weight: 86.17 kg

DRUGS (1)
  1. MIRENA [Suspect]
     Active Substance: LEVONORGESTREL
     Indication: CONTRACEPTION
     Dosage: 20 MCG/24HR, CONT
     Route: 015
     Dates: start: 201202, end: 20150810

REACTIONS (10)
  - Anxiety [None]
  - Menorrhagia [None]
  - Abdominal pain [None]
  - Depression [None]
  - Uterine perforation [None]
  - Medical device discomfort [None]
  - Internal injury [None]
  - Genital haemorrhage [None]
  - Device issue [None]
  - Pelvic pain [None]

NARRATIVE: CASE EVENT DATE: 201503
